FAERS Safety Report 4395377-X (Version None)
Quarter: 2004Q3

REPORT INFORMATION
  Report Type: 
  Country: None (occurrence: None)
  Receive Date: 20040707
  Receipt Date: 20040624
  Transmission Date: 20050211
  Serious: Yes (Death, Life-Threatening)
  Sender: FDA-Public Use
  Company Number: 2004038071

PATIENT
  Age: 62 Year
  Sex: Male

DRUGS (9)
  1. FLUCONAZOLE [Suspect]
     Indication: PERITONEAL CANDIDIASIS
     Dosage: 1600 MG (2 IN 1 D), INTRAVENOUS
     Route: 042
     Dates: start: 20040424
  2. FLUCONAZOLE [Suspect]
     Indication: SEPTIC SHOCK
     Dosage: 1600 MG (2 IN 1 D), INTRAVENOUS
     Route: 042
     Dates: start: 20040424
  3. CEFTRIAXONE (CEFTRIAXONE) [Concomitant]
  4. METRONIDAZOLE [Concomitant]
  5. AMIKACIN [Concomitant]
  6. AMOXICILLIN W/CLAVULANATE POTASSIUM (AMOXICILLIN, CLAVULANATE POTASSIU [Concomitant]
  7. VANCOMYCIN [Concomitant]
  8. CIPROFLOXACIN [Concomitant]
  9. IMIPENEM (IMIPENEM) [Concomitant]

REACTIONS (5)
  - ABSCESS [None]
  - CANDIDA SEPSIS [None]
  - CARDIOGENIC SHOCK [None]
  - CATHETER RELATED INFECTION [None]
  - SEPTIC SHOCK [None]
